FAERS Safety Report 24072658 (Version 1)
Quarter: 2024Q3

REPORT INFORMATION
  Report Type: Spontaneous
  Country: US (occurrence: US)
  Receive Date: 20240710
  Receipt Date: 20240710
  Transmission Date: 20241017
  Serious: Yes (Hospitalization)
  Sender: RICOLA
  Company Number: US-Ricola USA Inc.-2158996

PATIENT
  Age: 74 Year
  Sex: Female

DRUGS (1)
  1. SUGAR FREE LEMON MINT HERB THROAT DROPS [Suspect]
     Active Substance: MENTHOL
     Indication: Oropharyngeal pain
     Route: 048
     Dates: start: 20240621, end: 20240622

REACTIONS (1)
  - Hypertension [Unknown]
